FAERS Safety Report 9254919 (Version 1)
Quarter: 2013Q2

REPORT INFORMATION
  Report Type: Spontaneous
  Country: US (occurrence: None)
  Receive Date: 20130423
  Receipt Date: 20130423
  Transmission Date: 20140414
  Serious: No
  Sender: FDA-Public Use
  Company Number: None

PATIENT
  Sex: Female
  Weight: 60 kg

DRUGS (3)
  1. VICTRELIS 200 MG [Suspect]
     Indication: HEPATITIS C
     Dosage: 4 TAB/PO
     Route: 048
     Dates: start: 20121211
  2. RIBAVIRIN [Suspect]
     Dosage: 3 TAB
     Route: 048
  3. PEGASYS 180MCG/0.5ML GENENTECH [Suspect]

REACTIONS (5)
  - Skin swelling [None]
  - Pruritus [None]
  - Erythema [None]
  - Drug hypersensitivity [None]
  - Blood oestrogen decreased [None]
